FAERS Safety Report 8935117 (Version 1)
Quarter: 2012Q4

REPORT INFORMATION
  Report Type: 
  Country: US (occurrence: US)
  Receive Date: 20121129
  Receipt Date: 20121129
  Transmission Date: 20130627
  Serious: No
  Sender: FDA-Public Use
  Company Number: US-009507513-1211USA010809

PATIENT
  Sex: Female

DRUGS (2)
  1. TEMODAR [Suspect]
     Dosage: 220 mg, bid
     Route: 048
  2. MORPHINE [Concomitant]

REACTIONS (2)
  - Dysphagia [Unknown]
  - Gastrointestinal tube insertion [Unknown]
